FAERS Safety Report 9015531 (Version 2)
Quarter: 2013Q1

REPORT INFORMATION
  Report Type: Spontaneous
  Country: US (occurrence: None)
  Receive Date: 20130102
  Receipt Date: 20130115
  Transmission Date: 20140127
  Serious: Yes (Hospitalization)
  Sender: FDA-Public Use
  Company Number: ACO_33509_2012

PATIENT
  Age: 46 Year
  Sex: Male

DRUGS (1)
  1. AMPYRA (DALFAMPRIDINE) [Suspect]
     Indication: MULTIPLE SCLEROSIS
     Dates: start: 20120530, end: 20121221

REACTIONS (2)
  - Convulsion [None]
  - Overdose [None]
